FAERS Safety Report 7025423-6 (Version None)
Quarter: 2010Q4

REPORT INFORMATION
  Report Type: 
  Country: None (occurrence: None)
  Receive Date: 20101001
  Receipt Date: 20100924
  Transmission Date: 20110411
  Serious: Yes (Hospitalization)
  Sender: FDA-Public Use
  Company Number: GXKR2010US10860

PATIENT
  Age: 86 Year
  Sex: Male

DRUGS (7)
  1. PHENOXYMETHYLPENICILLIN [Suspect]
     Indication: PROPHYLAXIS
     Dosage: UNK
     Route: 065
  2. HYDROCHLOROTHIAZIDE [Concomitant]
     Route: 065
  3. RIVASTIGMINE [Concomitant]
     Route: 065
  4. MEMANTINE [Concomitant]
     Route: 065
  5. METFORMIN HCL [Concomitant]
     Route: 065
  6. METOPROLOL TARTRATE [Concomitant]
     Route: 065
  7. DIVALPROEX SODIUM [Concomitant]
     Route: 065

REACTIONS (6)
  - CONTUSION [None]
  - FACTOR VIII DEFICIENCY [None]
  - GINGIVAL BLEEDING [None]
  - HAEMATOMA [None]
  - HAEMORRHAGE [None]
  - SWELLING FACE [None]
